FAERS Safety Report 23302963 (Version 1)
Quarter: 2023Q4

REPORT INFORMATION
  Report Type: Spontaneous
  Country: US (occurrence: US)
  Receive Date: 20231215
  Receipt Date: 20231215
  Transmission Date: 20240110
  Serious: Yes (Other)
  Sender: FDA-Public Use
  Company Number: US-SUN PHARMACEUTICAL INDUSTRIES LTD-2023R1-423512

PATIENT
  Age: 4 Year
  Sex: Female

DRUGS (1)
  1. ERLOTINIB [Suspect]
     Active Substance: ERLOTINIB
     Indication: Hyperkeratosis
     Dosage: 80 MILLIGRAM, QD
     Route: 048

REACTIONS (2)
  - Dermatitis acneiform [Recovering/Resolving]
  - Therapy partial responder [Unknown]
